FAERS Safety Report 13781977 (Version 1)
Quarter: 2017Q3

REPORT INFORMATION
  Report Type: Spontaneous
  Country: FR (occurrence: FR)
  Receive Date: 20170724
  Receipt Date: 20170724
  Transmission Date: 20171127
  Serious: Yes (Life-Threatening, Hospitalization)
  Sender: FDA-Public Use
  Company Number: FR-TEVA-788094ROM

PATIENT
  Age: 4 Year
  Sex: Male
  Weight: 19 kg

DRUGS (13)
  1. CYTARABINE EBEWE [Suspect]
     Active Substance: CYTARABINE
     Dosage: 30 MILLIGRAM DAILY; UNIQUE INTAKE
     Route: 037
     Dates: start: 20170214
  2. BACTRIM [Concomitant]
     Active Substance: SULFAMETHOXAZOLE\TRIMETHOPRIM
     Indication: PROPHYLAXIS
     Dates: start: 20170213, end: 20170216
  3. ETOPOSIDE MYLAN [Suspect]
     Active Substance: ETOPOSIDE
     Indication: T-CELL TYPE ACUTE LEUKAEMIA
     Dosage: 112 MILLIGRAM DAILY;
     Route: 041
     Dates: start: 20170212, end: 20170214
  4. HYDROCORTISONE UPJOHN [Suspect]
     Active Substance: HYDROCORTISONE
     Indication: T-CELL TYPE ACUTE LEUKAEMIA
     Dosage: 15 MILLIGRAM DAILY; UNIQUE INTAKE
     Route: 037
     Dates: start: 20170214
  5. METHOTREXATE (METHOTREXATE SODIUM) [Suspect]
     Active Substance: METHOTREXATE SODIUM
     Indication: T-CELL TYPE ACUTE LEUKAEMIA
     Dosage: 12 MILLIGRAM DAILY; UNIQUE INTAKE
     Route: 037
     Dates: start: 20170214
  6. ONCASPAR [Suspect]
     Active Substance: PEGASPARGASE
     Indication: ACUTE LEUKAEMIA
     Dosage: 1875 IU (INTERNATIONAL UNIT) DAILY;
     Route: 041
     Dates: start: 20170215
  7. MITOXANTRONE TEVA [Suspect]
     Active Substance: MITOXANTRONE HYDROCHLORIDE
     Indication: T-CELL TYPE ACUTE LEUKAEMIA
     Dosage: 6 MILLIGRAM DAILY;
     Route: 041
     Dates: start: 20170212, end: 20170213
  8. DEXAMETHASONE MYLAN [Suspect]
     Active Substance: DEXAMETHASONE
     Indication: T-CELL TYPE ACUTE LEUKAEMIA
     Dosage: 14 MILLIGRAM DAILY;
     Route: 042
     Dates: start: 20170210, end: 20170214
  9. CEFTAZIDIME PANPHARMA [Concomitant]
     Active Substance: CEFTAZIDIME
     Indication: APLASIA
     Dosage: 300 MILLIGRAM DAILY;
     Route: 041
     Dates: start: 20170216, end: 20170302
  10. AMIKACINE MYLAN [Concomitant]
     Active Substance: AMIKACIN
     Indication: APLASIA
     Dosage: 300 MILLIGRAM DAILY;
     Route: 042
     Dates: start: 20170216, end: 20170228
  11. CANCIDAS [Concomitant]
     Active Substance: CASPOFUNGIN ACETATE
     Indication: PROPHYLAXIS
     Dosage: 50 MILLIGRAM DAILY;
     Dates: start: 20170210, end: 20170211
  12. CYTARABINE EBEWE [Suspect]
     Active Substance: CYTARABINE
     Indication: T-CELL TYPE ACUTE LEUKAEMIA
     Dosage: 3000 MILLIGRAM DAILY;
     Route: 041
     Dates: start: 20170210, end: 20170211
  13. VANCOMYCINE MERCK [Concomitant]
     Active Substance: VANCOMYCIN
     Indication: APLASIA
     Route: 041
     Dates: start: 20170210, end: 20170216

REACTIONS (4)
  - Septic embolus [Recovered/Resolved]
  - Endocarditis [Recovered/Resolved]
  - Hydrocephalus [Recovered/Resolved]
  - Septic shock [Recovered/Resolved]

NARRATIVE: CASE EVENT DATE: 20170222
